FAERS Safety Report 4954482-7 (Version None)
Quarter: 2006Q1

REPORT INFORMATION
  Report Type: 
  Country: None (occurrence: None)
  Receive Date: 20060327
  Receipt Date: 20060317
  Transmission Date: 20060701
  Serious: Yes (Other)
  Sender: FDA-Public Use
  Company Number: US-AVENTIS-200612719US

PATIENT

DRUGS (4)
  1. APIDRA [Suspect]
     Dosage: DOSE: UNKNOWN
  2. HUMALOG [Concomitant]
     Dosage: DOSE: UNKNOWN
  3. LANTUS [Concomitant]
     Dosage: DOSE: UNKNOWN
  4. LANTUS [Concomitant]
     Dosage: DOSE: UNKNOWN

REACTIONS (2)
  - DIABETES MELLITUS INADEQUATE CONTROL [None]
  - EPILEPSY [None]
